FAERS Safety Report 20719489 (Version 1)
Quarter: 2022Q2

REPORT INFORMATION
  Report Type: Spontaneous
  Country: PL (occurrence: PL)
  Receive Date: 20220418
  Receipt Date: 20220418
  Transmission Date: 20220721
  Serious: Yes (Other)
  Sender: FDA-Public Use
  Company Number: PL-NOVARTISPH-NVSC2022PL086364

PATIENT
  Age: 38 Year
  Sex: Female

DRUGS (4)
  1. TACROLIMUS [Suspect]
     Active Substance: TACROLIMUS
     Indication: Polycystic ovaries
     Dosage: UNK, QD
     Route: 048
  2. METFORMIN [Concomitant]
     Active Substance: METFORMIN HYDROCHLORIDE
     Indication: Polycystic ovaries
     Dosage: 500-1500 MG, UNKNOWN
     Route: 048
  3. INOSITOL [Concomitant]
     Active Substance: INOSITOL
     Indication: Polycystic ovaries
     Dosage: 1000-2000 MG, UNKNOWN
     Route: 048
  4. ENOXAPARIN [Concomitant]
     Active Substance: ENOXAPARIN
     Indication: Polycystic ovaries
     Dosage: 40 MG, UNKNOWN
     Route: 058

REACTIONS (2)
  - COVID-19 [Unknown]
  - Off label use [Unknown]
